FAERS Safety Report 21257437 (Version 1)
Quarter: 2022Q3

REPORT INFORMATION
  Report Type: Spontaneous
  Country: US (occurrence: US)
  Receive Date: 20220826
  Receipt Date: 20220826
  Transmission Date: 20221027
  Serious: Yes (Other)
  Sender: FDA-Public Use
  Company Number: US-SUN PHARMACEUTICAL INDUSTRIES LTD-2022R1-347722

PATIENT
  Age: 55 Year
  Sex: Male

DRUGS (1)
  1. PREDNISONE [Suspect]
     Active Substance: PREDNISONE
     Indication: Neuralgic amyotrophy
     Dosage: 60 MG OVER 2 WEEKS
     Route: 065

REACTIONS (1)
  - Therapy partial responder [Unknown]
